FAERS Safety Report 13746616 (Version 2)
Quarter: 2017Q3

REPORT INFORMATION
  Report Type: Report from Study
  Country: US (occurrence: US)
  Receive Date: 20170712
  Receipt Date: 20170714
  Transmission Date: 20171127
  Serious: No
  Sender: FDA-Public Use
  Company Number: US-GILEAD-2017-0282344

PATIENT
  Age: 68 Year
  Sex: Male

DRUGS (1)
  1. RANOLAZINE. [Suspect]
     Active Substance: RANOLAZINE
     Indication: PRODUCT USED FOR UNKNOWN INDICATION
     Dosage: 1000 MG, UNK
     Route: 048
     Dates: start: 20140706

REACTIONS (3)
  - Dry mouth [Not Recovered/Not Resolved]
  - Tinnitus [Not Recovered/Not Resolved]
  - Memory impairment [Not Recovered/Not Resolved]
